FAERS Safety Report 8911500 (Version 1)
Quarter: 2012Q4

REPORT INFORMATION
  Report Type: Spontaneous
  Country: US (occurrence: None)
  Receive Date: 20121114
  Receipt Date: 20121114
  Transmission Date: 20130627
  Serious: No
  Sender: FDA-Public Use
  Company Number: None

PATIENT
  Age: 60 Year
  Sex: Female
  Weight: 83.92 kg

DRUGS (2)
  1. BACTRIM DS [Suspect]
     Indication: BRONCHITIS
     Dosage: ds, bid, po
     Route: 048
     Dates: start: 20121031, end: 20121103
  2. ALBUTEROL MDI [Concomitant]

REACTIONS (1)
  - Pharyngeal oedema [None]
